FAERS Safety Report 21950207 (Version 1)
Quarter: 2023Q1

REPORT INFORMATION
  Report Type: Spontaneous
  Country: US (occurrence: None)
  Receive Date: 20230202
  Receipt Date: 20230202
  Transmission Date: 20230417
  Serious: Yes (Disabling, Other)
  Sender: FDA-Public Use
  Company Number: None

PATIENT
  Age: 59 Year
  Sex: Male
  Weight: 97.65 kg

DRUGS (12)
  1. TEPEZZA [Suspect]
     Active Substance: TEPROTUMUMAB-TRBW
     Indication: Endocrine ophthalmopathy
     Dosage: OTHER QUANTITY : 8 IV INFUSION;?OTHER FREQUENCY : EA. 3 WEEKS X 8;?OTHER ROUTE : IV INFUSION;?
     Route: 050
     Dates: start: 20220901, end: 20230107
  2. Timolol Maleate Ophthalmic [Concomitant]
  3. METFORMIN HYDROCHLORIDE [Concomitant]
     Active Substance: METFORMIN HYDROCHLORIDE
  4. METHIMAZOLE [Concomitant]
     Active Substance: METHIMAZOLE
  5. ATORVASTATIN [Concomitant]
     Active Substance: ATORVASTATIN
  6. CALCIUM [Concomitant]
     Active Substance: CALCIUM
  7. MELOXICAM [Concomitant]
     Active Substance: MELOXICAM
  8. SELENIUM [Concomitant]
     Active Substance: SELENIUM
  9. ZINC [Concomitant]
     Active Substance: ZINC
  10. ASCORBIC ACID [Concomitant]
     Active Substance: ASCORBIC ACID
  11. VITAMINS D3 [Concomitant]
  12. Vitamins E [Concomitant]

REACTIONS (5)
  - Muscle spasms [None]
  - Muscle spasms [None]
  - Abdominal pain upper [None]
  - Tinnitus [None]
  - Onychoclasis [None]

NARRATIVE: CASE EVENT DATE: 20221001
